FAERS Safety Report 6256110-X (Version None)
Quarter: 2009Q2

REPORT INFORMATION
  Report Type: 
  Country: None (occurrence: None)
  Receive Date: 20090630
  Receipt Date: 20090630
  Transmission Date: 20091009
  Serious: Yes (Life-Threatening, Hospitalization)
  Sender: FDA-Public Use
  Company Number: None

PATIENT
  Age: 26 Year
  Sex: Male
  Weight: 111.1313 kg

DRUGS (4)
  1. AMBIEN CR [Suspect]
     Indication: ANXIETY
     Dosage: ONE TABLET DAILY IN PM PO
     Route: 048
     Dates: start: 20080909, end: 20080916
  2. AMBIEN CR [Suspect]
     Indication: INSOMNIA
     Dosage: ONE TABLET DAILY IN PM PO
     Route: 048
     Dates: start: 20080909, end: 20080916
  3. AMBIEN CR [Suspect]
     Indication: ANXIETY
     Dosage: ONE TABLET DAILY IN PM PO
     Route: 048
     Dates: start: 20090501, end: 20090525
  4. AMBIEN CR [Suspect]
     Indication: INSOMNIA
     Dosage: ONE TABLET DAILY IN PM PO
     Route: 048
     Dates: start: 20090501, end: 20090525

REACTIONS (4)
  - AMNESIA [None]
  - APPARENT DEATH [None]
  - SOMNAMBULISM [None]
  - TRANCE [None]
